FAERS Safety Report 11336506 (Version 1)
Quarter: 2015Q3

REPORT INFORMATION
  Report Type: Spontaneous
  Country: TR (occurrence: TR)
  Receive Date: 20150804
  Receipt Date: 20150804
  Transmission Date: 20151125
  Serious: Yes (Other)
  Sender: FDA-Public Use
  Company Number: TR-HOSPIRA-2952772

PATIENT
  Age: 53 Year
  Sex: Male
  Weight: 51 kg

DRUGS (3)
  1. CARBOPLATIN DBL [Suspect]
     Active Substance: CARBOPLATIN
     Indication: LUNG NEOPLASM MALIGNANT
     Route: 042
     Dates: start: 20150618, end: 20150618
  2. CARBOPLATIN KOCAK [Suspect]
     Active Substance: CARBOPLATIN
     Indication: LUNG NEOPLASM MALIGNANT
     Route: 042
     Dates: start: 20150618, end: 20150618
  3. ANZATAX                            /00285201/ [Suspect]
     Active Substance: CLONAZEPAM
     Indication: LUNG NEOPLASM MALIGNANT
     Dosage: 100 UOM NOT REPORTED
     Route: 042
     Dates: start: 20150618, end: 20150618

REACTIONS (3)
  - Bronchospasm [Recovering/Resolving]
  - Tachypnoea [Recovering/Resolving]
  - Erythema [Recovering/Resolving]
